FAERS Safety Report 16058903 (Version 5)
Quarter: 2022Q2

REPORT INFORMATION
  Report Type: Spontaneous
  Country: US (occurrence: US)
  Receive Date: 20190311
  Receipt Date: 20220516
  Transmission Date: 20220720
  Serious: Yes (Hospitalization)
  Sender: FDA-Public Use
  Company Number: US-PFIZER INC-2019100290

PATIENT
  Age: 79 Year
  Sex: Female

DRUGS (1)
  1. XELJANZ XR [Suspect]
     Active Substance: TOFACITINIB CITRATE
     Dosage: 11 MG

REACTIONS (5)
  - Herpes zoster [Unknown]
  - Pain [Unknown]
  - Pain in extremity [Recovering/Resolving]
  - Confusional state [Unknown]
  - Sunburn [Unknown]

NARRATIVE: CASE EVENT DATE: 20210101
